FAERS Safety Report 7311811-7 (Version None)
Quarter: 2011Q1

REPORT INFORMATION
  Report Type: 
  Country: None (occurrence: None)
  Receive Date: 20110224
  Receipt Date: 20110218
  Transmission Date: 20110831
  Serious: Yes (Other)
  Sender: FDA-Public Use
  Company Number: US-BRISTOL-MYERS SQUIBB COMPANY-15559172

PATIENT

DRUGS (1)
  1. GLUCOPHAGE [Suspect]

REACTIONS (4)
  - MYELOPATHY [None]
  - VITAMIN B12 DEFICIENCY [None]
  - ANAEMIA [None]
  - NEUROPATHY PERIPHERAL [None]
